FAERS Safety Report 12957102 (Version 2)
Quarter: 2017Q1

REPORT INFORMATION
  Report Type: Spontaneous
  Country: US (occurrence: US)
  Receive Date: 20161119
  Receipt Date: 20170105
  Transmission Date: 20170428
  Serious: No
  Sender: FDA-Public Use
  Company Number: US-ASTRAZENECA-2016SF11926

PATIENT
  Sex: Female

DRUGS (3)
  1. OXYGEN. [Concomitant]
     Active Substance: OXYGEN
     Route: 065
  2. SYMBICORT [Suspect]
     Active Substance: BUDESONIDE\FORMOTEROL FUMARATE DIHYDRATE
     Indication: BRONCHITIS CHRONIC
     Dosage: 160/4.5 MCG, UNKNOWN FREQUENCY
     Route: 055
     Dates: start: 2015
  3. SYMBICORT [Suspect]
     Active Substance: BUDESONIDE\FORMOTEROL FUMARATE DIHYDRATE
     Indication: CHRONIC OBSTRUCTIVE PULMONARY DISEASE
     Dosage: 160/4.5 MCG, UNKNOWN FREQUENCY
     Route: 055
     Dates: start: 2015

REACTIONS (7)
  - Fatigue [Unknown]
  - Dyspnoea [Unknown]
  - Dyspnoea exertional [Unknown]
  - Product quality issue [Unknown]
  - Feeling abnormal [Unknown]
  - Visual acuity reduced [Unknown]
  - Intentional product misuse [Unknown]

NARRATIVE: CASE EVENT DATE: 20161001
